FAERS Safety Report 12875682 (Version 8)
Quarter: 2018Q1

REPORT INFORMATION
  Report Type: Report from Study
  Country: SE (occurrence: SE)
  Receive Date: 20161024
  Receipt Date: 20180323
  Transmission Date: 20180508
  Serious: Yes (Life-Threatening, Hospitalization)
  Sender: FDA-Public Use
  Company Number: SE-CELGENEUS-SWE-2016094242

PATIENT
  Age: 67 Year
  Sex: Male

DRUGS (6)
  1. REVLIMID [Suspect]
     Active Substance: LENALIDOMIDE
     Indication: MANTLE CELL LYMPHOMA
     Dosage: UNKNOWN
     Route: 048
     Dates: start: 20160111
  2. RITUXIMAB. [Suspect]
     Active Substance: RITUXIMAB
     Indication: MANTLE CELL LYMPHOMA
     Dosage: UNKNOWN
     Route: 065
  3. RITUXIMAB. [Suspect]
     Active Substance: RITUXIMAB
     Route: 065
  4. IBRUTINIB [Suspect]
     Active Substance: IBRUTINIB
     Dosage: 560 MILLIGRAM
     Route: 048
  5. RITUXIMAB. [Suspect]
     Active Substance: RITUXIMAB
     Dosage: UNKNOWN
     Route: 065
     Dates: start: 2014, end: 201602
  6. IBRUTINIB [Suspect]
     Active Substance: IBRUTINIB
     Indication: MANTLE CELL LYMPHOMA
     Dosage: UNKNOWN
     Route: 065
     Dates: end: 20160915

REACTIONS (1)
  - Guillain-Barre syndrome [Recovered/Resolved with Sequelae]

NARRATIVE: CASE EVENT DATE: 20160915
